FAERS Safety Report 13636004 (Version 1)
Quarter: 2017Q2

REPORT INFORMATION
  Report Type: Other
  Country: US (occurrence: US)
  Receive Date: 20170609
  Receipt Date: 20170609
  Transmission Date: 20170830
  Serious: Yes (Hospitalization)
  Sender: FDA-Public Use
  Company Number: US-B. BRAUN MEDICAL INC.-2021726

PATIENT
  Age: 78 Year
  Sex: Male

DRUGS (6)
  1. ROCURONIUM [Concomitant]
     Active Substance: ROCURONIUM BROMIDE
  2. FUROSEMIDE. [Concomitant]
     Active Substance: FUROSEMIDE
     Route: 042
  3. HYDROMORPHONE HCL [Concomitant]
     Active Substance: HYDROMORPHONE HYDROCHLORIDE
  4. LACTATED RINGERS [Concomitant]
     Active Substance: CALCIUM CHLORIDE\POTASSIUM CHLORIDE\SODIUM CHLORIDE\SODIUM LACTATE
     Route: 042
  5. 0.9% SODIUM CHLORIDE IRRIGATION USP 0264-7388-50 0264-7388-60 [Suspect]
     Active Substance: SODIUM CHLORIDE
     Indication: PROSTATIC OPERATION
     Route: 050
  6. DESFLURANE. [Concomitant]
     Active Substance: DESFLURANE

REACTIONS (4)
  - Metabolic acidosis [Recovered/Resolved]
  - Face oedema [None]
  - Hypoxia [Recovered/Resolved]
  - Haemodilution [Recovered/Resolved]
